FAERS Safety Report 8541677-9 (Version None)
Quarter: 2012Q3

REPORT INFORMATION
  Report Type: 
  Country: None (occurrence: None)
  Receive Date: 20120726
  Receipt Date: 20110920
  Transmission Date: 20120928
  Serious: No
  Sender: FDA-Public Use
  Company Number: US-ASTRAZENECA-2011SE56414

PATIENT
  Age: 80 Year
  Sex: Female

DRUGS (3)
  1. GLUCOVAN [Concomitant]
  2. METFORMIN HYDROCHLORIDE [Concomitant]
  3. SEROQUEL XR [Suspect]
     Indication: DEPRESSION
     Route: 048

REACTIONS (1)
  - HYPOGLYCAEMIA [None]
